FAERS Safety Report 20381930 (Version 1)
Quarter: 2022Q1

REPORT INFORMATION
  Report Type: Spontaneous
  Country: GB (occurrence: GB)
  Receive Date: 20220127
  Receipt Date: 20220127
  Transmission Date: 20220424
  Serious: Yes (Other)
  Sender: FDA-Public Use
  Company Number: None

PATIENT
  Age: 80 Year
  Sex: Female
  Weight: 66 kg

DRUGS (5)
  1. EZETIMIBE [Suspect]
     Active Substance: EZETIMIBE
     Indication: Product used for unknown indication
     Dosage: ONE TO BE TAKEN EACH DAY
     Dates: start: 20211224, end: 20220111
  2. COCODAMOL [Concomitant]
     Active Substance: ACETAMINOPHEN\CODEINE PHOSPHATE
     Dosage: ONE OR TWO TO BE TAKEN AS REQUIRED DAILY
     Dates: start: 20211202
  3. COMIRNATY [Concomitant]
     Active Substance: TOZINAMERAN
     Indication: COVID-19 immunisation
     Route: 030
     Dates: start: 20211014, end: 20211014
  4. EZETIMIBE [Concomitant]
     Active Substance: EZETIMIBE
     Dosage: ONE TO BE TAKEN EACH DAY
     Dates: start: 20211224, end: 20220111
  5. PREGABALIN [Concomitant]
     Active Substance: PREGABALIN
     Dosage: ONE TO BE TAKEN TWICE A DAY
     Dates: start: 20211102

REACTIONS (1)
  - Hallucination [Recovered/Resolved]

NARRATIVE: CASE EVENT DATE: 20211224
